FAERS Safety Report 8017421-0 (Version None)
Quarter: 2012Q1

REPORT INFORMATION
  Report Type: 
  Country: None (occurrence: None)
  Receive Date: 20120102
  Receipt Date: 20111217
  Transmission Date: 20120608
  Serious: Yes (Hospitalization, Other)
  Sender: FDA-Public Use
  Company Number: PHHY2011US111234

PATIENT
  Age: 62 Year
  Sex: Male

DRUGS (11)
  1. MYCOPHENOLATE MOFETIL [Suspect]
     Dosage: 750 MG, BID
  2. TACROLIMUS [Concomitant]
     Dosage: 5 MG, BID
  3. PREDNISONE [Concomitant]
     Dosage: 60 MG, DAILY
     Route: 048
  4. IRON [Concomitant]
     Dosage: 325 MG, DAILY
  5. COUMADIN [Concomitant]
     Dosage: 3 MG, DAILY
  6. OMEPRAZOLE [Concomitant]
     Dosage: 20 MG, DAILY
  7. INSULIN GLARGINE [Concomitant]
     Dosage: 12 U, QHS
  8. INSULIN [Concomitant]
  9. PREDNISONE [Concomitant]
     Dosage: 5 MG PER DAY
     Route: 048
  10. ALBUTEROL [Concomitant]
     Dosage: 2 PUFFS, PRN
  11. IPRATROPIUM BROMIDE [Concomitant]
     Dosage: 2 PUFFS, PRN

REACTIONS (19)
  - PNEUMONIA [None]
  - HYPOXIA [None]
  - OXYGEN SATURATION DECREASED [None]
  - RESPIRATORY RATE INCREASED [None]
  - TRANSPLANT REJECTION [None]
  - ANXIETY [None]
  - RHONCHI [None]
  - MENTAL STATUS CHANGES [None]
  - BODY TEMPERATURE INCREASED [None]
  - DEHYDRATION [None]
  - PLEURAL EFFUSION [None]
  - LUNG NEOPLASM [None]
  - DECREASED APPETITE [None]
  - SOMNOLENCE [None]
  - DEPRESSED LEVEL OF CONSCIOUSNESS [None]
  - WEIGHT DECREASED [None]
  - PLEURAL FIBROSIS [None]
  - RHODOCOCCUS INFECTION [None]
  - DYSPNOEA [None]
